FAERS Safety Report 18312474 (Version 1)
Quarter: 2020Q3

REPORT INFORMATION
  Report Type: Spontaneous
  Country: US (occurrence: US)
  Receive Date: 20200925
  Receipt Date: 20200925
  Transmission Date: 20201103
  Serious: Yes (Other)
  Sender: FDA-Public Use
  Company Number: US-APOTEX-2020AP017554

PATIENT
  Age: 45 Year
  Sex: Female

DRUGS (2)
  1. CLEAR NICOTINE PATCH [Suspect]
     Active Substance: NICOTINE
     Indication: SMOKING CESSATION THERAPY
     Dosage: 1 DOSAGE FORM, QD (ON HER ARM)
     Route: 062
     Dates: start: 202008, end: 20200901
  2. CLEAR NICOTINE PATCH [Suspect]
     Active Substance: NICOTINE
     Dosage: UNK
     Route: 062

REACTIONS (9)
  - Dizziness [Unknown]
  - Pain [Recovered/Resolved]
  - Illness [Recovered/Resolved]
  - Nausea [Unknown]
  - Seizure [Unknown]
  - Movement disorder [Recovered/Resolved]
  - Drug ineffective [Unknown]
  - Pain in extremity [Recovered/Resolved]
  - Presyncope [Unknown]

NARRATIVE: CASE EVENT DATE: 2020
